FAERS Safety Report 12246473 (Version 3)
Quarter: 2016Q3

REPORT INFORMATION
  Report Type: Spontaneous
  Country: US (occurrence: US)
  Receive Date: 20160407
  Receipt Date: 20160726
  Transmission Date: 20161109
  Serious: No
  Sender: FDA-Public Use
  Company Number: US-PFIZER INC-2016153843

PATIENT
  Age: 57 Year
  Sex: Female
  Weight: 103 kg

DRUGS (33)
  1. FOLIC ACID. [Concomitant]
     Active Substance: FOLIC ACID
     Dosage: 1 MG, DAILY
     Route: 048
  2. CHERATUSSIN AC [Concomitant]
     Active Substance: CODEINE PHOSPHATE\GUAIFENESIN
     Dosage: 10 ML, AS NEEDED, (10MG- 100 MG/ 5 ML ORAL LIQUID) (EVERY 4 HOUR)
     Route: 048
     Dates: end: 20160209
  3. ALBUTEROL SULFATE. [Concomitant]
     Active Substance: ALBUTEROL SULFATE
     Dosage: 3 ML, 4X/DAY, (INHALE 3 MILLILITRE BY NEBULIZATION)
     Route: 055
  4. BUTALBITAL- ACETAMINOPHEN [Concomitant]
     Dosage: UNK UNK, EVERY 4 HRS, (BUTALBITAL- 50MG/PARACETAMOL-325MG)
     Route: 048
  5. ZOMIG ZMT [Concomitant]
     Active Substance: ZOLMITRIPTAN
     Dosage: 5 MG, UNK
     Route: 060
  6. PROTONIX [Concomitant]
     Active Substance: PANTOPRAZOLE SODIUM
     Dosage: 40 MG, DAILY
     Route: 048
  7. RHINOCORT AQUA [Concomitant]
     Active Substance: BUDESONIDE
     Dosage: UNK, DAILY, (SPRAY 1 SPRAY BY INTRANASAL ROUTE EVERY DAY IN EACH NOSTRIL)
     Route: 045
  8. VITAMIN D3 [Concomitant]
     Active Substance: CHOLECALCIFEROL
     Dosage: 2000 IU, DAILY
     Route: 048
  9. PREDNISONE. [Concomitant]
     Active Substance: PREDNISONE
     Dosage: 10 MG, DAILY
     Route: 048
  10. REQUIP [Concomitant]
     Active Substance: ROPINIROLE HYDROCHLORIDE
     Dosage: 3 MG, 2X/DAY
     Route: 048
  11. COENZYME Q10 [Concomitant]
     Active Substance: UBIDECARENONE
     Dosage: UNK, 2X/DAY, RED YEAST RICE 60 MG - 600MG CAPSULE
  12. LASIX [Concomitant]
     Active Substance: FUROSEMIDE
     Dosage: 40 MG, DAILY
     Route: 048
  13. METHOTREXATE SODIUM. [Concomitant]
     Active Substance: METHOTREXATE SODIUM
     Dosage: 12.5 MG, 2X/WEEK, (TAKE 5 TABLETS ON MONDAY AND THURSDAY)
  14. TRAMADOL. [Concomitant]
     Active Substance: TRAMADOL
     Dosage: 100 MG, AS NEEDED, (TAKE 2 TABLET BY ORAL ROUTE EVERY 6 HOURS)
     Route: 048
  15. XANAX [Concomitant]
     Active Substance: ALPRAZOLAM
     Dosage: 0.5 MG, 3X/DAY, TAKE 1/2 TABLETS BY ORAL ROUTE EVERY 8 HOURS
     Route: 048
  16. LYRICA [Suspect]
     Active Substance: PREGABALIN
     Dosage: 100 MG, 3X/DAY
     Route: 048
  17. CARAFATE [Concomitant]
     Active Substance: SUCRALFATE
     Dosage: 1 G, 4X/DAY, (AN EMPTY STOMACH 1 HOUR BEFORE MEALS AND AT BEDTIME)
     Route: 048
  18. KLOR-CON M20 [Concomitant]
     Active Substance: POTASSIUM CHLORIDE
     Dosage: 1 DF, DAILY, WITH FOOD
     Route: 048
  19. MAXZIDE [Concomitant]
     Active Substance: HYDROCHLOROTHIAZIDE\TRIAMTERENE
     Dosage: 25 MG, DAILY, (HYDROCHLOROTHIAZIDE-25MG/TRIAMTERENE-37.5MG)
     Route: 048
  20. NIACIN. [Concomitant]
     Active Substance: NIACIN
     Dosage: 1000 MG, 1X/DAY, EVERY DAY AT BEDTIME
     Route: 048
  21. PLAQUENIL [Concomitant]
     Active Substance: HYDROXYCHLOROQUINE SULFATE
     Dosage: 200 MG, 2X/DAY
     Route: 048
  22. AMLODIPINE [Concomitant]
     Active Substance: AMLODIPINE BESYLATE
     Dosage: 5 MG, DAILY
     Route: 048
  23. BACITRACIN. [Concomitant]
     Active Substance: BACITRACIN
     Dosage: 500 UNIT/GRAM
     Route: 047
     Dates: end: 20160512
  24. NEXIUM [Concomitant]
     Active Substance: ESOMEPRAZOLE MAGNESIUM
     Dosage: 40 MG, DAILY
     Route: 048
     Dates: end: 20160512
  25. PYRIDIUM [Concomitant]
     Active Substance: PHENAZOPYRIDINE
     Dosage: 200 MG, 3X/DAY, AFTER MEALS
     Route: 048
  26. VENTOLIN HFA [Concomitant]
     Active Substance: ALBUTEROL SULFATE
     Dosage: UNK, AS NEEDED, (90 MCG/ACTUATION AEROSOL INHALER) (INHALE 2 PUFF BY INHALATION ROUTE EVERY 4-6 HR)
  27. VITAMIN E [Concomitant]
     Active Substance: .ALPHA.-TOCOPHEROL
     Dosage: 400 IU, UNK
  28. XANAX [Concomitant]
     Active Substance: ALPRAZOLAM
     Dosage: 1.5 MG, 3X/DAY ( 0.5MG, TAKE 1 1/2 TABLETS BY ORAL ROUTE EVERY 8 HOURS)
     Route: 048
  29. BETAMETHASONE DIPROPIONATE. [Concomitant]
     Active Substance: BETAMETHASONE DIPROPIONATE
     Dosage: UNK, DAILY, (FEW DROPS TO THE AFFECTED AREA AND MASSAGE LIGHTLY UNIT IT DISAPPEARS)
     Route: 061
  30. LORATADINE. [Concomitant]
     Active Substance: LORATADINE
     Dosage: 10 MG, DAILY
     Route: 048
  31. MONTELUKAST [Concomitant]
     Active Substance: MONTELUKAST SODIUM
     Dosage: 10 MG, 1X/DAY, EVERY DAY IN THE EVENING
     Route: 048
  32. SOMA [Concomitant]
     Active Substance: CARISOPRODOL
     Dosage: 350 MG, 4X/DAY, 1 TABLET BY ORAL ROUTE EVERY 6 HOURS
     Route: 048
  33. VALIUM [Concomitant]
     Active Substance: DIAZEPAM
     Dosage: 5 MG, AS NEEDED, EVERY BEDTIME
     Route: 048

REACTIONS (11)
  - Arthralgia [Unknown]
  - Muscle spasms [Unknown]
  - Insomnia [Unknown]
  - Anxiety [Unknown]
  - Condition aggravated [Unknown]
  - Decreased interest [Unknown]
  - Fear [Unknown]
  - Mobility decreased [Unknown]
  - Depressed mood [Unknown]
  - Stress [Unknown]
  - Pain [Unknown]
